FAERS Safety Report 4879266-X (Version None)
Quarter: 2006Q1

REPORT INFORMATION
  Report Type: 
  Country: None (occurrence: None)
  Receive Date: 20060112
  Receipt Date: 20050816
  Transmission Date: 20060701
  Serious: Yes (Hospitalization)
  Sender: FDA-Public Use
  Company Number: US-MERCK-0508USA03055

PATIENT
  Age: 55 Year
  Sex: Male
  Weight: 114 kg

DRUGS (10)
  1. VIOXX [Suspect]
     Indication: KNEE ARTHROPLASTY
     Route: 048
     Dates: start: 20011101, end: 20020801
  2. LOPRESSOR [Concomitant]
     Route: 065
  3. ACIPHEX [Concomitant]
     Route: 065
  4. ASPIRIN [Concomitant]
     Route: 065
  5. ALLEGRA [Concomitant]
     Route: 065
  6. NORVASC [Concomitant]
     Route: 065
  7. LOTENSIN [Concomitant]
     Route: 065
  8. TOPROL-XL [Concomitant]
     Route: 065
  9. LIPITOR [Concomitant]
     Route: 065
  10. COUMADIN [Concomitant]
     Route: 065

REACTIONS (3)
  - ARTHROPATHY [None]
  - MYOCARDIAL INFARCTION [None]
  - PROSTATIC DISORDER [None]
